FAERS Safety Report 25909075 (Version 2)
Quarter: 2025Q4

REPORT INFORMATION
  Report Type: Spontaneous
  Country: US (occurrence: US)
  Receive Date: 20251011
  Receipt Date: 20251029
  Transmission Date: 20260118
  Serious: No
  Sender: Kenvue
  Company Number: US-KENVUE-20250901133

PATIENT
  Age: 76 Year
  Sex: Female

DRUGS (2)
  1. WOMENS ROGAINE UNSCENTED [Suspect]
     Active Substance: MINOXIDIL
     Indication: Alopecia
     Dosage: STARTED ABOUT 6 YEARS AGO, APPLIED LIBERALLY, USING THE PRODUCT JUST EVERY OTHER DAY, RECENTLY
     Route: 061
  2. WOMENS ROGAINE UNSCENTED [Suspect]
     Active Substance: MINOXIDIL
     Dosage: STARTED ABOUT 6 YEARS AGO, APPLIED LIBERALLY, USING THE PRODUCT JUST EVERY OTHER DAY, RECENTLY
     Route: 061

REACTIONS (8)
  - Hair texture abnormal [Recovering/Resolving]
  - Eye irritation [Recovering/Resolving]
  - Eye pain [Recovering/Resolving]
  - Accidental exposure to product [Unknown]
  - Poor quality product administered [Unknown]
  - Incorrect dose administered [Unknown]
  - Inappropriate schedule of product administration [Unknown]
  - Product formulation issue [Unknown]

NARRATIVE: CASE EVENT DATE: 20250902
